FAERS Safety Report 23569478 (Version 7)
Quarter: 2025Q3

REPORT INFORMATION
  Report Type: Spontaneous
  Country: JP (occurrence: JP)
  Receive Date: 20240227
  Receipt Date: 20250803
  Transmission Date: 20251021
  Serious: Yes (Hospitalization, Other)
  Sender: ALEXION PHARMACEUTICALS
  Company Number: 2024A013134

PATIENT
  Age: 60 Year
  Sex: Female
  Weight: 50 kg

DRUGS (19)
  1. IMFINZI [Suspect]
     Active Substance: DURVALUMAB
     Indication: Non-small cell lung cancer
     Dosage: 490 MILLIGRAM, Q2W
     Dates: start: 20230113, end: 20230719
  2. IMFINZI [Suspect]
     Active Substance: DURVALUMAB
     Dates: start: 20230816, end: 20231212
  3. IMJUDO [Suspect]
     Active Substance: TREMELIMUMAB\TREMELIMUMAB-ACTL
     Indication: Non-small cell lung cancer
     Dates: start: 20230816, end: 20231114
  4. CARBOPLATIN [Concomitant]
     Active Substance: CARBOPLATIN
     Indication: Non-small cell lung cancer
     Route: 065
     Dates: start: 20230816, end: 20231114
  5. ABRAXANE [Concomitant]
     Active Substance: PACLITAXEL
     Indication: Non-small cell lung cancer
     Dates: start: 20230816, end: 20231128
  6. ABRAXANE [Concomitant]
     Active Substance: PACLITAXEL
     Route: 065
  7. URSO [Concomitant]
     Active Substance: URSODIOL
     Indication: Non-small cell lung cancer
  8. URSO [Concomitant]
     Active Substance: URSODIOL
     Route: 065
  9. SPIRIVA [Concomitant]
     Active Substance: TIOTROPIUM BROMIDE MONOHYDRATE
     Indication: Non-small cell lung cancer
  10. SPIRIVA [Concomitant]
     Active Substance: TIOTROPIUM BROMIDE MONOHYDRATE
     Route: 065
  11. VONOPRAZAN FUMARATE [Concomitant]
     Active Substance: VONOPRAZAN FUMARATE
     Indication: Non-small cell lung cancer
  12. VONOPRAZAN FUMARATE [Concomitant]
     Active Substance: VONOPRAZAN FUMARATE
     Indication: Gastrointestinal disorder
  13. TEPRENONE [Concomitant]
     Active Substance: TEPRENONE
     Indication: Non-small cell lung cancer
  14. TEPRENONE [Concomitant]
     Active Substance: TEPRENONE
     Route: 065
  15. BIO-THREE [Concomitant]
     Active Substance: HERBALS
     Indication: Non-small cell lung cancer
  16. Astomin [Concomitant]
     Indication: Non-small cell lung cancer
  17. Astomin [Concomitant]
     Indication: Lung neoplasm malignant
  18. CARBOCYSTEINE [Concomitant]
     Active Substance: CARBOCYSTEINE
     Indication: Non-small cell lung cancer
  19. CARBOCYSTEINE [Concomitant]
     Active Substance: CARBOCYSTEINE
     Indication: Lung neoplasm malignant

REACTIONS (2)
  - Aplasia pure red cell [Recovering/Resolving]
  - Immune thrombocytopenia [Recovering/Resolving]

NARRATIVE: CASE EVENT DATE: 20240110
